FAERS Safety Report 4918629-0 (Version None)
Quarter: 2006Q1

REPORT INFORMATION
  Report Type: 
  Country: None (occurrence: None)
  Receive Date: 20060221
  Receipt Date: 20060221
  Transmission Date: 20060701
  Serious: Yes (Hospitalization, Disabling, Other)
  Sender: FDA-Public Use
  Company Number: None

PATIENT
  Age: 25 Year
  Sex: Female
  Weight: 61.2356 kg

DRUGS (1)
  1. SEPTRA [Suspect]
     Indication: SINUSITIS
     Dosage: 200MG  BID PO
     Route: 048
     Dates: start: 20060121, end: 20060201

REACTIONS (1)
  - STEVENS-JOHNSON SYNDROME [None]
